FAERS Safety Report 6899583-1 (Version None)
Quarter: 2010Q3

REPORT INFORMATION
  Report Type: 
  Country: None (occurrence: None)
  Receive Date: 20100803
  Receipt Date: 20100717
  Transmission Date: 20110219
  Serious: Yes (Hospitalization, Other)
  Sender: FDA-Public Use
  Company Number: RU-RANBAXY-2010R3-36332

PATIENT

DRUGS (2)
  1. CIPROFLOXACIN [Suspect]
     Indication: MYCOBACTERIUM ULCERANS INFECTION
     Dosage: 500MG, BID
     Route: 065
  2. RIFAMPICIN [Suspect]
     Indication: MYCOBACTERIUM ULCERANS INFECTION
     Dosage: 300 MG, BID
     Route: 065

REACTIONS (5)
  - CELLULITIS [None]
  - ERYTHEMA [None]
  - JOINT SWELLING [None]
  - MYCOBACTERIUM TEST POSITIVE [None]
  - PARADOXICAL DRUG REACTION [None]
